FAERS Safety Report 20840869 (Version 1)
Quarter: 2022Q2

REPORT INFORMATION
  Report Type: Spontaneous
  Country: US (occurrence: US)
  Receive Date: 20220517
  Receipt Date: 20220517
  Transmission Date: 20220721
  Serious: No
  Sender: FDA-Public Use
  Company Number: US-SUNOVION-2022SUN001542

PATIENT
  Age: 37 Year
  Sex: Female

DRUGS (1)
  1. LATUDA [Suspect]
     Active Substance: LURASIDONE HYDROCHLORIDE
     Indication: Bipolar disorder
     Dosage: 20 MG
     Route: 048

REACTIONS (9)
  - Autoscopy [Not Recovered/Not Resolved]
  - Feeling abnormal [Not Recovered/Not Resolved]
  - Feeling drunk [Not Recovered/Not Resolved]
  - Emotional disorder [Not Recovered/Not Resolved]
  - Crying [Not Recovered/Not Resolved]
  - Speech disorder [Not Recovered/Not Resolved]
  - Psychomotor hyperactivity [Not Recovered/Not Resolved]
  - Somnolence [Not Recovered/Not Resolved]
  - Therapy interrupted [Unknown]

NARRATIVE: CASE EVENT DATE: 20220507
